FAERS Safety Report 7074899-7 (Version None)
Quarter: 2010Q4

REPORT INFORMATION
  Report Type: 
  Country: None (occurrence: None)
  Receive Date: 20101029
  Receipt Date: 20101022
  Transmission Date: 20110411
  Serious: Yes (Other)
  Sender: FDA-Public Use
  Company Number: TR-GILEAD-2010-0032836

PATIENT
  Age: 24 Year
  Sex: Female

DRUGS (1)
  1. VIREAD [Suspect]

REACTIONS (3)
  - DRUG INEFFECTIVE [None]
  - OSTEOPENIA [None]
  - VIRAL LOAD INCREASED [None]
